FAERS Safety Report 25191356 (Version 3)
Quarter: 2025Q3

REPORT INFORMATION
  Report Type: Spontaneous
  Country: US (occurrence: US)
  Receive Date: 20250411
  Receipt Date: 20250721
  Transmission Date: 20251021
  Serious: No
  Sender: MERCK SHARP & DOHME LLC
  Company Number: US-009507513-2269186

PATIENT
  Sex: Male

DRUGS (8)
  1. WINREVAIR [Suspect]
     Active Substance: SOTATERCEPT-CSRK
     Indication: Product used for unknown indication
     Dates: start: 2025, end: 20250606
  2. WINREVAIR [Suspect]
     Active Substance: SOTATERCEPT-CSRK
  3. WINREVAIR [Suspect]
     Active Substance: SOTATERCEPT-CSRK
  4. WINREVAIR [Suspect]
     Active Substance: SOTATERCEPT-CSRK
  5. STELARA [Concomitant]
     Active Substance: USTEKINUMAB
  6. TADALAFIL [Concomitant]
     Active Substance: TADALAFIL
  7. REMODULIN [Suspect]
     Active Substance: TREPROSTINIL
     Indication: Pulmonary arterial hypertension
     Route: 058
     Dates: start: 202103
  8. OPSUMIT [Concomitant]
     Active Substance: MACITENTAN

REACTIONS (4)
  - Infusion site haemorrhage [Unknown]
  - Gingival bleeding [Unknown]
  - Skin laceration [Unknown]
  - Bleeding time prolonged [Unknown]

NARRATIVE: CASE EVENT DATE: 20250101
